FAERS Safety Report 5080238-3 (Version None)
Quarter: 2006Q3

REPORT INFORMATION
  Report Type: 
  Country: None (occurrence: None)
  Receive Date: 20060810
  Receipt Date: 20060801
  Transmission Date: 20061208
  Serious: Yes (Hospitalization)
  Sender: FDA-Public Use
  Company Number: 2006-08-0316

PATIENT
  Age: 38 Year
  Sex: Male

DRUGS (8)
  1. PEG-INTRON [Suspect]
     Indication: HEPATITIS C
     Dosage: SUBCUTANEOUS
     Route: 058
     Dates: start: 20060427
  2. RIBASPHERE [Suspect]
     Indication: HEPATITIS C
     Dosage: ORAL
     Route: 048
     Dates: start: 20060427
  3. CARAFATE [Concomitant]
  4. LASIX [Concomitant]
  5. NADOLOL [Concomitant]
  6. FOLIC ACID TAB [Concomitant]
  7. PREVACID ORALS [Concomitant]
  8. SPIRONOLACTONE [Concomitant]

REACTIONS (2)
  - CHOLELITHIASIS [None]
  - POSTOPERATIVE INFECTION [None]
